FAERS Safety Report 6959135-1 (Version None)
Quarter: 2010Q3

REPORT INFORMATION
  Report Type: 
  Country: None (occurrence: None)
  Receive Date: 20100827
  Receipt Date: 20100818
  Transmission Date: 20110219
  Serious: Yes (Other)
  Sender: FDA-Public Use
  Company Number: 2010US003395

PATIENT

DRUGS (1)
  1. LEXISCAN [Suspect]
     Indication: SCAN MYOCARDIAL PERFUSION
     Dosage: 1 DF, TOTAL DOSE, IV NOS
     Route: 042
     Dates: start: 20100101, end: 20100101

REACTIONS (1)
  - CARDIAC DISORDER [None]
